FAERS Safety Report 7504380-X (Version None)
Quarter: 2011Q2

REPORT INFORMATION
  Report Type: 
  Country: None (occurrence: None)
  Receive Date: 20110525
  Receipt Date: 20110518
  Transmission Date: 20111010
  Serious: Yes (Other)
  Sender: FDA-Public Use
  Company Number: NL-BAXTER-2011BH012897

PATIENT
  Age: 53 Year
  Sex: Male

DRUGS (2)
  1. GAMMAGARD LIQUID [Suspect]
     Indication: GUILLAIN-BARRE SYNDROME
     Route: 042
     Dates: start: 20081024, end: 20110420
  2. SODIUM CHLORIDE 0.9% IN PLASTIC CONTAINER [Suspect]
     Indication: PRODUCT USED FOR UNKNOWN INDICATION
     Route: 042
     Dates: start: 20110420, end: 20110420

REACTIONS (5)
  - GROIN PAIN [None]
  - FEELING COLD [None]
  - PALLOR [None]
  - MALAISE [None]
  - RESTLESSNESS [None]
